FAERS Safety Report 13952349 (Version 1)
Quarter: 2017Q3

REPORT INFORMATION
  Report Type: Spontaneous
  Country: US (occurrence: US)
  Receive Date: 20170911
  Receipt Date: 20170911
  Transmission Date: 20171128
  Serious: No
  Sender: FDA-Public Use
  Company Number: US-TEVA-702206USA

PATIENT
  Age: 55 Year
  Sex: Female

DRUGS (1)
  1. FENTANYL. [Suspect]
     Active Substance: FENTANYL
     Indication: PAIN
     Dosage: 75MCG 5
     Route: 062
     Dates: start: 20160905

REACTIONS (6)
  - Application site pain [Unknown]
  - Application site burn [Unknown]
  - Application site urticaria [Unknown]
  - Application site discomfort [Unknown]
  - Application site erythema [Unknown]
  - Product adhesion issue [Unknown]

NARRATIVE: CASE EVENT DATE: 20160905
